FAERS Safety Report 9322910 (Version 2)
Quarter: 2013Q2

REPORT INFORMATION
  Report Type: Report from Study
  Country: PY (occurrence: PY)
  Receive Date: 20130602
  Receipt Date: 20130619
  Transmission Date: 20140414
  Serious: Yes (Other)
  Sender: FDA-Public Use
  Company Number: PHHY2012PY012021

PATIENT
  Age: 43 Year
  Sex: Male

DRUGS (2)
  1. GLIVEC [Suspect]
     Indication: CHRONIC MYELOID LEUKAEMIA
     Dosage: 400MG DAILY
     Route: 048
     Dates: start: 20100608
  2. GLIVEC [Suspect]
     Dosage: 800 MG, DAILY
     Route: 048
     Dates: start: 20130222

REACTIONS (9)
  - Chronic myeloid leukaemia [Unknown]
  - Malignant neoplasm progression [Unknown]
  - White blood cell count increased [Unknown]
  - Thrombocytopenia [Recovered/Resolved]
  - Anaemia [Recovered/Resolved]
  - Myelocytosis [Unknown]
  - Splenomegaly [Unknown]
  - Hypersplenism [Unknown]
  - No therapeutic response [Unknown]
